FAERS Safety Report 5168342-2 (Version None)
Quarter: 2006Q4

REPORT INFORMATION
  Report Type: 
  Country: None (occurrence: None)
  Receive Date: 20061208
  Receipt Date: 20060906
  Transmission Date: 20070319
  Serious: Yes (Hospitalization)
  Sender: FDA-Public Use
  Company Number: US-JNJFOC-20060300303

PATIENT
  Age: 70 Year
  Sex: Female
  Weight: 71.67 kg

DRUGS (8)
  1. MONISTAT 1 COMBINATION PACK [Suspect]
     Route: 067
  2. MONISTAT 1 COMBINATION PACK [Suspect]
     Indication: FUNGAL INFECTION
     Dosage: OVULE
     Route: 067
  3. MONISTAT 1 COMBINATION PACK [Suspect]
     Route: 061
  4. MONISTAT 1 COMBINATION PACK [Suspect]
     Dosage: 100MG EXTERNAL CREAM
     Route: 061
  5. CORGARD [Concomitant]
  6. LOVASTATIN [Concomitant]
  7. HRT [Concomitant]
  8. CELEXA [Concomitant]

REACTIONS (1)
  - ATRIAL FIBRILLATION [None]
